FAERS Safety Report 8591954-0 (Version None)
Quarter: 2012Q3

REPORT INFORMATION
  Report Type: 
  Country: None (occurrence: None)
  Receive Date: 20120814
  Receipt Date: 20120809
  Transmission Date: 20120928
  Serious: Yes (Hospitalization)
  Sender: FDA-Public Use
  Company Number: DE-AMGEN-DEUSP2012036007

PATIENT
  Age: 82 Year
  Sex: Female
  Weight: 43 kg

DRUGS (6)
  1. PROLIA [Suspect]
     Indication: OSTEOPOROSIS POSTMENOPAUSAL
     Dosage: UNK
  2. VOLTAREN [Concomitant]
     Dosage: UNK UNK, PRN
     Dates: start: 20110720
  3. DILTAHEXAL [Concomitant]
     Dosage: 60 MG, UNK
     Dates: start: 20111222
  4. SIMVASTATIN [Concomitant]
     Dosage: 40 MG, UNK
     Dates: start: 20120215
  5. RAMIPRIL HEXAL [Concomitant]
     Dosage: 5 MG, UNK
     Dates: start: 20111222
  6. CORVATON [Concomitant]
     Dosage: 2 MG, UNK
     Dates: start: 20120112

REACTIONS (4)
  - MYALGIA [None]
  - BONE PAIN [None]
  - PAIN [None]
  - PAIN IN EXTREMITY [None]
